FAERS Safety Report 19386769 (Version 1)
Quarter: 2021Q2

REPORT INFORMATION
  Report Type: Spontaneous
  Country: US (occurrence: US)
  Receive Date: 20210604
  Receipt Date: 20210604
  Transmission Date: 20210717
  Serious: Yes (Hospitalization)
  Sender: FDA-Public Use
  Company Number: None

PATIENT
  Age: 73 Year
  Sex: Female
  Weight: 52.2 kg

DRUGS (1)
  1. YESCARTA [Suspect]
     Active Substance: AXICABTAGENE CILOLEUCEL
     Indication: PRODUCT USED FOR UNKNOWN INDICATION

REACTIONS (8)
  - Depressed level of consciousness [None]
  - Speech disorder [None]
  - Confusional state [None]
  - Encephalopathy [None]
  - Aphasia [None]
  - Memory impairment [None]
  - Neurotoxicity [None]
  - Pyrexia [None]

NARRATIVE: CASE EVENT DATE: 20210318
